FAERS Safety Report 11582609 (Version 1)
Quarter: 2015Q4

REPORT INFORMATION
  Report Type: Spontaneous
  Country: US (occurrence: US)
  Receive Date: 20151001
  Receipt Date: 20151001
  Transmission Date: 20160304
  Serious: No
  Sender: FDA-Public Use
  Company Number: US-ROCHE-706757

PATIENT
  Sex: Male
  Weight: 90.9 kg

DRUGS (3)
  1. PEGASYS [Suspect]
     Active Substance: PEGINTERFERON ALFA-2A
     Indication: HEPATITIS C
     Route: 058
  2. VIRAMUNE [Concomitant]
     Active Substance: NEVIRAPINE
     Route: 065
  3. RIBAVIRIN. [Suspect]
     Active Substance: RIBAVIRIN
     Indication: HEPATITIS C
     Dosage: 600 MG IN AM AND 600 MG IN PM.
     Route: 048

REACTIONS (5)
  - Feeling abnormal [Unknown]
  - Headache [Unknown]
  - Rash [Unknown]
  - Nausea [Unknown]
  - Irritability [Unknown]
